FAERS Safety Report 18691469 (Version 6)
Quarter: 2021Q3

REPORT INFORMATION
  Report Type: Report from Study
  Country: IT (occurrence: IT)
  Receive Date: 20210101
  Receipt Date: 20210811
  Transmission Date: 20211014
  Serious: Yes (Hospitalization, Other)
  Sender: FDA-Public Use
  Company Number: IT-TAKEDA-2020TUS046150

PATIENT
  Age: 56 Year
  Sex: Male
  Weight: 93 kg

DRUGS (58)
  1. ADVATE [Suspect]
     Active Substance: ANTIHEMOPHILIC FACTOR, HUMAN RECOMBINANT
     Indication: PAIN IN EXTREMITY
     Dosage: 5000 INTERNATIONAL UNIT, QD
     Route: 065
     Dates: start: 20160516, end: 20160516
  2. ADVATE [Suspect]
     Active Substance: ANTIHEMOPHILIC FACTOR, HUMAN RECOMBINANT
     Dosage: 3000 INTERNATIONAL UNIT
     Route: 042
     Dates: start: 20201019
  3. AUGMENTINE [Concomitant]
     Active Substance: AMOXICILLIN\CLAVULANATE POTASSIUM
     Indication: PROPHYLAXIS
     Dosage: 1 GRAM, BID
     Route: 065
     Dates: start: 20170426, end: 201705
  4. CIPROFLOXACIN. [Concomitant]
     Active Substance: CIPROFLOXACIN
     Indication: PYREXIA
     Dosage: 500 MILLIGRAM, BID
     Route: 065
     Dates: start: 20181005, end: 20190123
  5. ADVATE [Suspect]
     Active Substance: ANTIHEMOPHILIC FACTOR, HUMAN RECOMBINANT
     Indication: PROPHYLAXIS
     Dosage: 3000 INTERNATIONAL UNIT, QD
     Route: 065
     Dates: start: 20160502, end: 20160515
  6. ADVATE [Suspect]
     Active Substance: ANTIHEMOPHILIC FACTOR, HUMAN RECOMBINANT
     Indication: PROPHYLAXIS
     Dosage: 3000 INTERNATIONAL UNIT, QD
     Route: 065
     Dates: start: 20160502, end: 20160515
  7. ADVATE [Suspect]
     Active Substance: ANTIHEMOPHILIC FACTOR, HUMAN RECOMBINANT
     Indication: STAPHYLOCOCCAL INFECTION
     Dosage: 4000 INTERNATIONAL UNIT, QD
     Route: 065
     Dates: start: 20200930, end: 20200930
  8. ADVATE [Suspect]
     Active Substance: ANTIHEMOPHILIC FACTOR, HUMAN RECOMBINANT
     Indication: STAPHYLOCOCCAL INFECTION
     Dosage: 4000 INTERNATIONAL UNIT, QD
     Route: 065
     Dates: start: 20200930, end: 20200930
  9. ARCOXIA [Concomitant]
     Active Substance: ETORICOXIB
     Dosage: 60 MILLIGRAM, QD
     Route: 065
     Dates: start: 202101
  10. LOBIVON [Concomitant]
     Active Substance: NEBIVOLOL HYDROCHLORIDE
     Indication: HYPERTENSION
     Dosage: 5 MILLIGRAM, AS NEEDED
     Route: 065
     Dates: start: 20110322, end: 20140707
  11. MEDROL [Concomitant]
     Active Substance: METHYLPREDNISOLONE
     Indication: PAIN IN EXTREMITY
     Dosage: 8 MILLIGRAM, AS NEEDED
     Dates: start: 20160325, end: 20160516
  12. MINOCYCLINE [Concomitant]
     Active Substance: MINOCYCLINE HYDROCHLORIDE
     Indication: STAPHYLOCOCCAL INFECTION
  13. RIFAMPIN. [Concomitant]
     Active Substance: RIFAMPIN
     Indication: ARTHRALGIA
     Dosage: 600 MILLIGRAM, QD
     Route: 065
     Dates: start: 20201014, end: 20201215
  14. RIFAMPIN. [Concomitant]
     Active Substance: RIFAMPIN
     Indication: JOINT SWELLING
     Dosage: 600 MILLIGRAM, QD
     Dates: start: 20210316
  15. TAPENTADOL [Concomitant]
     Active Substance: TAPENTADOL
     Indication: ARTHRALGIA
     Dosage: 100 MILLIGRAM, QD
     Route: 065
     Dates: start: 20201014, end: 20201215
  16. TAZOCIN [Concomitant]
     Active Substance: PIPERACILLIN SODIUM\TAZOBACTAM SODIUM
  17. APROVEL [Concomitant]
     Active Substance: IRBESARTAN
     Indication: HYPERTENSION
     Dosage: 150 MILLIGRAM, QD
     Route: 065
     Dates: start: 20201029
  18. BACTRIM [Concomitant]
     Active Substance: SULFAMETHOXAZOLE\TRIMETHOPRIM
     Indication: STAPHYLOCOCCAL INFECTION
     Dosage: 180 MILLIGRAM, BID
     Route: 065
     Dates: start: 20210316
  19. MEDROL [Concomitant]
     Active Substance: METHYLPREDNISOLONE
     Dosage: 16 MILLIGRAM, QD
     Dates: start: 20190410
  20. TAPENTADOL [Concomitant]
     Active Substance: TAPENTADOL
     Indication: JOINT SWELLING
     Dosage: 100 MILLIGRAM, QD
     Dates: start: 201807
  21. ADVATE [Suspect]
     Active Substance: ANTIHEMOPHILIC FACTOR, HUMAN RECOMBINANT
     Dosage: 3000 INTERNATIONAL UNIT
     Route: 042
     Dates: start: 20210226
  22. ARCOXIA [Concomitant]
     Active Substance: ETORICOXIB
     Indication: ARTHRALGIA
     Dosage: 90 MILLIGRAM, QD
     Route: 065
     Dates: start: 20180920, end: 20180922
  23. CIPROFLOXACIN. [Concomitant]
     Active Substance: CIPROFLOXACIN
     Indication: ARTHRALGIA
     Dosage: 750 MILLIGRAM, BID
     Route: 065
     Dates: start: 20201006, end: 20201013
  24. LOBIVON [Concomitant]
     Active Substance: NEBIVOLOL HYDROCHLORIDE
     Dosage: 5 MILLIGRAM, QD
     Route: 065
     Dates: start: 20191128
  25. ZYVOXID [Concomitant]
     Active Substance: LINEZOLID
  26. ADVATE [Suspect]
     Active Substance: ANTIHEMOPHILIC FACTOR, HUMAN RECOMBINANT
     Dosage: 3000 INTERNATIONAL UNIT
     Route: 042
     Dates: start: 20201019
  27. ADVATE [Suspect]
     Active Substance: ANTIHEMOPHILIC FACTOR, HUMAN RECOMBINANT
     Dosage: 3000 INTERNATIONAL UNIT
     Route: 042
     Dates: start: 20210226
  28. CIPROFLOXACIN. [Concomitant]
     Active Substance: CIPROFLOXACIN
     Indication: STAPHYLOCOCCAL INFECTION
     Dosage: 500 MILLIGRAM, BID
     Route: 065
     Dates: start: 20201014, end: 20201215
  29. FERRO?GRAD [Concomitant]
     Active Substance: FERROUS SULFATE
     Indication: ANAEMIA
     Dosage: 1 DOSAGE FORM, QD
     Route: 065
     Dates: start: 20140725
  30. MAVIRET [Concomitant]
     Active Substance: GLECAPREVIR\PIBRENTASVIR
     Indication: INFECTION
     Dosage: 3 DOSAGE FORM, QD
     Route: 065
     Dates: start: 20180712, end: 20180907
  31. MEDROL [Concomitant]
     Active Substance: METHYLPREDNISOLONE
     Indication: JOINT SWELLING
     Dosage: 16 MILLIGRAM, QD
     Dates: start: 20160502, end: 20160516
  32. MINOCYCLINE [Concomitant]
     Active Substance: MINOCYCLINE HYDROCHLORIDE
     Indication: ARTHRALGIA
     Dosage: 100 MILLIGRAM, QD
     Route: 065
     Dates: start: 20201014, end: 20201215
  33. MINOCYCLINE [Concomitant]
     Active Substance: MINOCYCLINE HYDROCHLORIDE
     Indication: JOINT SWELLING
     Dosage: 100 MILLIGRAM, BID
     Dates: start: 20210316
  34. PANTORC [Concomitant]
     Active Substance: PANTOPRAZOLE SODIUM
     Indication: GASTROOESOPHAGEAL REFLUX DISEASE
     Dosage: 40 MILLIGRAM, QD
     Dates: start: 20201029
  35. ADALIMUMAB [Concomitant]
     Active Substance: ADALIMUMAB
     Indication: PSORIASIS
     Dosage: UNK
     Route: 065
     Dates: start: 20160920, end: 201709
  36. AUGMENTINE [Concomitant]
     Active Substance: AMOXICILLIN\CLAVULANATE POTASSIUM
     Indication: HAEMATURIA
     Dosage: UNK
     Route: 065
     Dates: start: 20161206, end: 20161212
  37. CIPROFLOXACIN. [Concomitant]
     Active Substance: CIPROFLOXACIN
     Indication: ANTIBIOTIC PROPHYLAXIS
     Dosage: 500 MILLIGRAM, BID
     Route: 065
     Dates: start: 20200921, end: 20201005
  38. DAPTOMYCIN. [Concomitant]
     Active Substance: DAPTOMYCIN
     Indication: STAPHYLOCOCCAL INFECTION
     Dosage: 500 MILLIGRAM, QD
     Route: 065
     Dates: start: 20201005, end: 20201013
  39. FERLIXIT [Concomitant]
     Active Substance: SODIUM FERRIC GLUCONATE COMPLEX
     Indication: STAPHYLOCOCCAL INFECTION
     Dosage: 62.5 MILLIGRAM, 3/WEEK
     Dates: start: 20140707, end: 20140724
  40. FOLIC ACID. [Concomitant]
     Active Substance: FOLIC ACID
     Indication: ANAEMIA
     Dosage: 5 MILLIGRAM, QD
     Route: 065
     Dates: start: 20100202
  41. RIFAMPIN. [Concomitant]
     Active Substance: RIFAMPIN
     Indication: STAPHYLOCOCCAL INFECTION
  42. ADVATE [Suspect]
     Active Substance: ANTIHEMOPHILIC FACTOR, HUMAN RECOMBINANT
     Indication: PROPHYLAXIS
     Dosage: 3000 INTERNATIONAL UNIT, QD
     Route: 065
     Dates: start: 20160502, end: 20160515
  43. ADVATE [Suspect]
     Active Substance: ANTIHEMOPHILIC FACTOR, HUMAN RECOMBINANT
     Indication: PAIN IN EXTREMITY
     Dosage: 5000 INTERNATIONAL UNIT, QD
     Route: 065
     Dates: start: 20160516, end: 20160516
  44. ADVATE [Suspect]
     Active Substance: ANTIHEMOPHILIC FACTOR, HUMAN RECOMBINANT
     Indication: STAPHYLOCOCCAL INFECTION
     Dosage: 4000 INTERNATIONAL UNIT, QD
     Route: 065
     Dates: start: 20200930, end: 20200930
  45. ADVATE [Suspect]
     Active Substance: ANTIHEMOPHILIC FACTOR, HUMAN RECOMBINANT
     Dosage: 3000 INTERNATIONAL UNIT
     Route: 042
     Dates: start: 20201019
  46. LEVOFLOXACIN. [Concomitant]
     Active Substance: LEVOFLOXACIN
     Indication: PROPHYLAXIS
     Dosage: 500 MILLIGRAM, QD
     Route: 065
     Dates: start: 20180813, end: 20180820
  47. MODURETIC 5?50 [Concomitant]
     Active Substance: AMILORIDE HYDROCHLORIDE\HYDROCHLOROTHIAZIDE
     Indication: HYPERTENSION
     Dosage: 22.5 MILLIGRAM, QD
     Route: 065
     Dates: start: 20201029
  48. ADVATE [Suspect]
     Active Substance: ANTIHEMOPHILIC FACTOR, HUMAN RECOMBINANT
     Indication: PAIN IN EXTREMITY
     Dosage: 5000 INTERNATIONAL UNIT, QD
     Route: 065
     Dates: start: 20160516, end: 20160516
  49. ADVATE [Suspect]
     Active Substance: ANTIHEMOPHILIC FACTOR, HUMAN RECOMBINANT
     Dosage: 3000 INTERNATIONAL UNIT
     Route: 042
     Dates: start: 20210226
  50. CIPROFLOXACIN. [Concomitant]
     Active Substance: CIPROFLOXACIN
     Indication: JOINT SWELLING
  51. CIPROFLOXACIN. [Concomitant]
     Active Substance: CIPROFLOXACIN
     Indication: DEVICE RELATED INFECTION
  52. DEXAMETHASONE. [Concomitant]
     Active Substance: DEXAMETHASONE
     Indication: PYREXIA
     Dosage: 16 MILLIGRAM, QD
     Route: 065
     Dates: start: 20201112, end: 20201114
  53. DEXAMETHASONE. [Concomitant]
     Active Substance: DEXAMETHASONE
     Dosage: 8 MILLIGRAM, QD
     Route: 065
     Dates: start: 20201115, end: 20201116
  54. FERLIXIT [Concomitant]
     Active Substance: SODIUM FERRIC GLUCONATE COMPLEX
     Indication: ANAEMIA
  55. MEDROL [Concomitant]
     Active Substance: METHYLPREDNISOLONE
     Indication: PSORIASIS
     Dosage: 16 MILLIGRAM, AS NEEDED
     Dates: start: 20160517, end: 20180708
  56. MEDROL [Concomitant]
     Active Substance: METHYLPREDNISOLONE
     Dosage: 16 MILLIGRAM, AS NEEDED
     Dates: start: 20180814, end: 20180823
  57. MEDROL [Concomitant]
     Active Substance: METHYLPREDNISOLONE
     Dosage: 16 MILLIGRAM, QD
     Dates: start: 20200917, end: 20200921
  58. MEDROL [Concomitant]
     Active Substance: METHYLPREDNISOLONE
     Dosage: 8 MILLIGRAM, QD
     Dates: start: 20200922, end: 20201005

REACTIONS (4)
  - Joint swelling [Recovered/Resolved]
  - Knee arthroplasty [Recovered/Resolved]
  - Vascular device infection [Recovered/Resolved]
  - Haematuria [Recovered/Resolved]

NARRATIVE: CASE EVENT DATE: 20170426
